FAERS Safety Report 7419119-6 (Version None)
Quarter: 2011Q2

REPORT INFORMATION
  Report Type: 
  Country: None (occurrence: None)
  Receive Date: 20110415
  Receipt Date: 20110321
  Transmission Date: 20111010
  Serious: No
  Sender: FDA-Public Use
  Company Number: US-B.I. PHARMACEUTICALS,INC./RIDGEFIELD-2011-BP-08778BP

PATIENT
  Sex: Female

DRUGS (4)
  1. ASMANEX TWISTHALER [Concomitant]
     Indication: ASTHMA
     Route: 055
  2. LASIX [Concomitant]
     Indication: HYPERTENSION
     Dosage: 40 MG
     Route: 048
  3. PRADAXA [Suspect]
     Indication: ATRIAL FIBRILLATION
     Dosage: 300 MG
     Route: 048
     Dates: start: 20110310
  4. SYNTHROID [Concomitant]
     Indication: HYPOTHYROIDISM
     Dosage: 0.75 MCG
     Route: 048

REACTIONS (4)
  - ABDOMINAL DISCOMFORT [None]
  - ODYNOPHAGIA [None]
  - DYSPEPSIA [None]
  - DIZZINESS [None]
